FAERS Safety Report 5454193-8 (Version None)
Quarter: 2007Q3

REPORT INFORMATION
  Report Type: 
  Country: None (occurrence: None)
  Receive Date: 20070917
  Receipt Date: 20070910
  Transmission Date: 20080115
  Serious: Yes (Hospitalization, Other)
  Sender: FDA-Public Use
  Company Number: PHBS2007CN10957

PATIENT
  Age: 24 Year
  Sex: Female

DRUGS (1)
  1. TRILEPTAL [Suspect]
     Indication: EPILEPSY
     Dosage: 300 MG, BID
     Route: 048
     Dates: start: 20070615, end: 20070626

REACTIONS (11)
  - CONJUNCTIVAL DISORDER [None]
  - DRUG ERUPTION [None]
  - DYSPNOEA [None]
  - EYE DISORDER [None]
  - LIP ULCERATION [None]
  - NAUSEA [None]
  - ORAL HERPES [None]
  - PYREXIA [None]
  - RASH [None]
  - SOMNOLENCE [None]
  - STEVENS-JOHNSON SYNDROME [None]
